FAERS Safety Report 15769744 (Version 6)
Quarter: 2020Q2

REPORT INFORMATION
  Report Type: Report from Study
  Country: US (occurrence: US)
  Receive Date: 20181228
  Receipt Date: 20200623
  Transmission Date: 20200713
  Serious: Yes (Death, Hospitalization, Other)
  Sender: FDA-Public Use
  Company Number: US-TAKEDA-2018TUS036631

PATIENT
  Age: 27 Year
  Sex: Male

DRUGS (2)
  1. PONATINIB [Suspect]
     Active Substance: PONATINIB
     Dosage: 30 MILLIGRAM, QD
     Route: 048
  2. PONATINIB [Suspect]
     Active Substance: PONATINIB
     Indication: ACUTE MYELOID LEUKAEMIA
     Dosage: 45 MILLIGRAM, QD
     Route: 048
     Dates: start: 201812

REACTIONS (15)
  - Candida infection [Unknown]
  - Death [Fatal]
  - Bone lesion [Unknown]
  - Pyrexia [Unknown]
  - Rectal haemorrhage [Unknown]
  - Tumour lysis syndrome [Unknown]
  - Pancytopenia [Unknown]
  - Diarrhoea [Unknown]
  - Vomiting [Unknown]
  - Blast cell crisis [Unknown]
  - Abdominal pain [Unknown]
  - Neutropenia [Unknown]
  - Adverse reaction [Unknown]
  - Off label use [Unknown]
  - Generalised oedema [Unknown]

NARRATIVE: CASE EVENT DATE: 201812
